FAERS Safety Report 11075675 (Version 21)
Quarter: 2023Q1

REPORT INFORMATION
  Report Type: Report from Study
  Country: CA (occurrence: CA)
  Receive Date: 20150429
  Receipt Date: 20230215
  Transmission Date: 20230418
  Serious: Yes (Other)
  Sender: FDA-Public Use
  Company Number: PHHY2011CA22905

PATIENT
  Age: 48 Year
  Sex: Male

DRUGS (8)
  1. SANDOSTATIN LAR DEPOT [Suspect]
     Active Substance: OCTREOTIDE ACETATE
     Indication: Acromegaly
     Dosage: 20 MG, QMO (EVERY 4 WEEKS)
     Route: 030
     Dates: start: 20110316
  2. SANDOSTATIN LAR DEPOT [Suspect]
     Active Substance: OCTREOTIDE ACETATE
     Indication: Neuroendocrine tumour
     Dosage: 20 MG, QMO (EVERY 4 WEEKS)
     Route: 030
     Dates: start: 20110414
  3. SANDOSTATIN LAR DEPOT [Suspect]
     Active Substance: OCTREOTIDE ACETATE
  4. ASPIRIN [Concomitant]
     Active Substance: ASPIRIN
     Indication: Cardiac disorder
     Dosage: UNK
     Route: 065
  5. METOPROLOL [Concomitant]
     Active Substance: METOPROLOL
     Indication: Cardiac disorder
     Dosage: UNK
     Route: 048
  6. GABAPENTIN [Concomitant]
     Active Substance: GABAPENTIN
     Indication: Product used for unknown indication
     Dosage: UNK
     Route: 048
  7. TYLENOL [Concomitant]
     Active Substance: ACETAMINOPHEN
     Indication: Product used for unknown indication
     Dosage: UNK, PRN
     Route: 048
  8. RAMIPRIL [Concomitant]
     Active Substance: RAMIPRIL
     Indication: Hypertension
     Dosage: UNK
     Route: 048

REACTIONS (44)
  - Haematochezia [Unknown]
  - Blood pressure increased [Unknown]
  - Lower respiratory tract infection [Recovered/Resolved]
  - Intervertebral disc protrusion [Unknown]
  - Fall [Unknown]
  - Foot fracture [Unknown]
  - Anorectal discomfort [Unknown]
  - Proctalgia [Unknown]
  - Back pain [Unknown]
  - Visual impairment [Recovered/Resolved]
  - Musculoskeletal stiffness [Unknown]
  - Peripheral coldness [Unknown]
  - Cyanosis [Unknown]
  - Pain in extremity [Unknown]
  - Dysstasia [Unknown]
  - Poor peripheral circulation [Unknown]
  - Blood pressure diastolic increased [Unknown]
  - Mental disorder [Unknown]
  - Gait disturbance [Unknown]
  - Mobility decreased [Unknown]
  - Injury [Unknown]
  - Blood pressure systolic increased [Unknown]
  - Chills [Unknown]
  - Urinary incontinence [Unknown]
  - Anal incontinence [Unknown]
  - Respiratory rate increased [Unknown]
  - Amnesia [Unknown]
  - Heart rate increased [Unknown]
  - Anxiety [Unknown]
  - Blood pressure decreased [Unknown]
  - Body temperature decreased [Unknown]
  - Insulin-like growth factor abnormal [Unknown]
  - COVID-19 [Recovered/Resolved]
  - Spinal stenosis [Unknown]
  - Blood creatinine increased [Unknown]
  - Cough [Unknown]
  - Diarrhoea [Unknown]
  - Fatigue [Unknown]
  - Abdominal distension [Recovered/Resolved]
  - Headache [Recovered/Resolved]
  - Dyspepsia [Unknown]
  - Productive cough [Unknown]
  - Constipation [Unknown]
  - Injection site pain [Unknown]

NARRATIVE: CASE EVENT DATE: 20110317
